FAERS Safety Report 16834045 (Version 1)
Quarter: 2019Q3

REPORT INFORMATION
  Report Type: Spontaneous
  Country: US (occurrence: US)
  Receive Date: 20190920
  Receipt Date: 20190920
  Transmission Date: 20191005
  Serious: No
  Sender: FDA-Public Use
  Company Number: US-PFIZER INC-2019406363

PATIENT
  Age: 80 Year
  Sex: Female
  Weight: 63.5 kg

DRUGS (2)
  1. MEDROL [Suspect]
     Active Substance: METHYLPREDNISOLONE
     Indication: ARTHRITIS
     Dosage: 4 MG, DAILY (UP TO FOUR DAILY/ ONLY 1 TABLET A DAY)
     Route: 048
  2. MEDROL [Suspect]
     Active Substance: METHYLPREDNISOLONE
     Dosage: 16 MG, DAILY (4 TABLETS DAILY)

REACTIONS (3)
  - Pain [Unknown]
  - Malaise [Unknown]
  - Drug ineffective [Not Recovered/Not Resolved]
